FAERS Safety Report 7040500-1 (Version None)
Quarter: 2010Q4

REPORT INFORMATION
  Report Type: 
  Country: None (occurrence: None)
  Receive Date: 20101012
  Receipt Date: 20101011
  Transmission Date: 20110411
  Serious: Yes (Hospitalization)
  Sender: FDA-Public Use
  Company Number: GB-AMGEN-KDC438292

PATIENT
  Sex: Male

DRUGS (13)
  1. CINACALCET [Suspect]
     Indication: HYPERPARATHYROIDISM SECONDARY
     Route: 048
     Dates: start: 20091005, end: 20100909
  2. ASPIRIN [Concomitant]
     Route: 048
  3. IMIPRAMINE [Concomitant]
     Route: 048
  4. LANTUS [Concomitant]
     Route: 058
  5. NOVORAPID [Concomitant]
     Route: 058
  6. EPREX [Concomitant]
  7. BISOPROLOL [Concomitant]
     Route: 048
  8. CITALOPRAM HYDROBROMIDE [Concomitant]
     Route: 048
  9. LANSOPRAZOLE [Concomitant]
     Route: 048
  10. FENTANYL [Concomitant]
  11. DOCUSATE SODIUM [Concomitant]
     Route: 048
  12. PREGABALIN [Concomitant]
     Route: 048
  13. LAXATIVES [Concomitant]

REACTIONS (3)
  - ARTHRALGIA [None]
  - INFECTED SKIN ULCER [None]
  - JOINT SWELLING [None]
